FAERS Safety Report 7450693-X (Version None)
Quarter: 2011Q2

REPORT INFORMATION
  Report Type: 
  Country: None (occurrence: None)
  Receive Date: 20110502
  Receipt Date: 20110426
  Transmission Date: 20111010
  Serious: Yes (Life-Threatening)
  Sender: FDA-Public Use
  Company Number: FR-SANOFI-AVENTIS-2011SA025772

PATIENT
  Age: 64 Year
  Sex: Male

DRUGS (2)
  1. LOVENOX [Suspect]
     Route: 042
     Dates: start: 20110201, end: 20110201
  2. ASPEGIC 325 [Suspect]
     Route: 042

REACTIONS (2)
  - CARDIAC TAMPONADE [None]
  - MYOCARDIAL RUPTURE [None]
